FAERS Safety Report 5263428-6 (Version None)
Quarter: 2007Q1

REPORT INFORMATION
  Report Type: 
  Country: None (occurrence: None)
  Receive Date: 20070313
  Receipt Date: 20070305
  Transmission Date: 20070707
  Serious: Yes (Hospitalization)
  Sender: FDA-Public Use
  Company Number: 2007AP01382

PATIENT
  Age: 25123 Day
  Sex: Female

DRUGS (2)
  1. ARIMIDEX [Suspect]
     Indication: BREAST CANCER FEMALE
     Route: 048
  2. CHEMOTHERAPY [Concomitant]
     Dates: start: 20020101, end: 20020101

REACTIONS (1)
  - LEFT VENTRICULAR FAILURE [None]
